FAERS Safety Report 17026224 (Version 2)
Quarter: 2020Q1

REPORT INFORMATION
  Report Type: Spontaneous
  Country: US (occurrence: US)
  Receive Date: 20191113
  Receipt Date: 20200107
  Transmission Date: 20200409
  Serious: Yes (Hospitalization, Other)
  Sender: FDA-Public Use
  Company Number: US-PFIZER INC-2019488860

PATIENT
  Age: 62 Year
  Sex: Male
  Weight: 86 kg

DRUGS (7)
  1. CRESTOR [Concomitant]
     Active Substance: ROSUVASTATIN CALCIUM
     Indication: BLOOD CHOLESTEROL ABNORMAL
     Dosage: 40 MG, UNK
     Dates: start: 2003
  2. XELJANZ XR [Suspect]
     Active Substance: TOFACITINIB CITRATE
     Indication: RHEUMATOID ARTHRITIS
     Dosage: UNK
     Dates: start: 2015
  3. XELJANZ XR [Suspect]
     Active Substance: TOFACITINIB CITRATE
     Dosage: 11 MG, 1X/DAY
     Dates: start: 2017
  4. ENALAPRIL [Concomitant]
     Active Substance: ENALAPRIL
     Indication: BLOOD PRESSURE ABNORMAL
     Dosage: 5 MG, UNK
     Dates: start: 2003
  5. ALENDRONATE [Concomitant]
     Active Substance: ALENDRONATE SODIUM
     Indication: OSTEOPOROSIS
     Dosage: 70 MG, UNK
     Dates: start: 2017
  6. WARFARIN [Concomitant]
     Active Substance: WARFARIN
     Indication: THROMBOSIS
     Dosage: 5 MG, UNK
  7. TENOLOL [Concomitant]
     Indication: BLOOD PRESSURE ABNORMAL
     Dosage: 25 MG, UNK
     Dates: start: 2003

REACTIONS (6)
  - Pulmonary embolism [Not Recovered/Not Resolved]
  - Diabetes mellitus [Not Recovered/Not Resolved]
  - Lung neoplasm malignant [Not Recovered/Not Resolved]
  - Squamous cell carcinoma [Not Recovered/Not Resolved]
  - Ear disorder [Not Recovered/Not Resolved]
  - Neoplasm [Not Recovered/Not Resolved]

NARRATIVE: CASE EVENT DATE: 2016
